FAERS Safety Report 20140064 (Version 1)
Quarter: 2021Q4

REPORT INFORMATION
  Report Type: Spontaneous
  Country: US (occurrence: US)
  Receive Date: 20211202
  Receipt Date: 20211202
  Transmission Date: 20220304
  Serious: No
  Sender: FDA-Public Use
  Company Number: US-ASSERTIO THERAPEUTICS, INC.-US-2021AST000005

PATIENT

DRUGS (2)
  1. ZORVOLEX [Suspect]
     Active Substance: DICLOFENAC
     Indication: Product used for unknown indication
     Dosage: 1 DF, QD
     Route: 065
  2. ZORVOLEX [Suspect]
     Active Substance: DICLOFENAC
     Dosage: 2 DF, A DAY
     Route: 065

REACTIONS (2)
  - Blood potassium increased [Recovering/Resolving]
  - Renal impairment [Recovering/Resolving]
